FAERS Safety Report 13569879 (Version 1)
Quarter: 2017Q2

REPORT INFORMATION
  Report Type: Spontaneous
  Country: ES (occurrence: ES)
  Receive Date: 20170522
  Receipt Date: 20170522
  Transmission Date: 20170830
  Serious: Yes (Other)
  Sender: FDA-Public Use
  Company Number: ES-PFIZER INC-2017218053

PATIENT
  Age: 76 Year
  Sex: Female

DRUGS (1)
  1. VANCOMICINA PFIZER [Suspect]
     Active Substance: VANCOMYCIN HYDROCHLORIDE
     Indication: DEVICE RELATED INFECTION
     Dosage: 2 G, 1X/DAY
     Route: 042
     Dates: start: 20160328, end: 20160404

REACTIONS (1)
  - Toxic skin eruption [Recovered/Resolved]

NARRATIVE: CASE EVENT DATE: 20160410
